FAERS Safety Report 8932756 (Version 1)
Quarter: 2012Q4

REPORT INFORMATION
  Report Type: 
  Country: US (occurrence: US)
  Receive Date: 20121128
  Receipt Date: 20121128
  Transmission Date: 20130627
  Serious: No
  Sender: FDA-Public Use
  Company Number: US-009507513-1211USA010247

PATIENT
  Sex: Female

DRUGS (3)
  1. PEGINTRON [Suspect]
     Indication: HEPATITIS C
     Dosage: UNK, qw
     Route: 058
     Dates: start: 20120803
  2. TELAPREVIR [Suspect]
  3. RIBASPHERE [Suspect]

REACTIONS (4)
  - Hypersensitivity [Unknown]
  - Blister [Unknown]
  - Urticaria [Unknown]
  - Pruritus [Unknown]
